FAERS Safety Report 25224313 (Version 1)
Quarter: 2025Q2

REPORT INFORMATION
  Report Type: Spontaneous
  Country: US (occurrence: None)
  Receive Date: 20250421
  Receipt Date: 20250421
  Transmission Date: 20250716
  Serious: Yes (Other)
  Sender: FDA-CTU
  Company Number: None

PATIENT
  Sex: Female

DRUGS (9)
  1. MIEBO [Suspect]
     Active Substance: PERFLUOROHEXYLOCTANE
     Indication: Dry eye
     Dosage: 1 DROP(S) EVERY 6 HOURS OPHTHALMIC?
     Route: 047
     Dates: start: 20250414, end: 20250420
  2. DOXYCYCLINE [Concomitant]
     Active Substance: DOXYCYCLINE
  3. HYDROCHLOROTHIAZIDE [Concomitant]
     Active Substance: HYDROCHLOROTHIAZIDE
  4. CITALOPRAM [Concomitant]
     Active Substance: CITALOPRAM
  5. OMEPRAZOLE [Concomitant]
     Active Substance: OMEPRAZOLE
  6. ESTRADIOL [Concomitant]
     Active Substance: ESTRADIOL
  7. VITAMIN D [Concomitant]
     Active Substance: VITAMIN D NOS
  8. B12 [Concomitant]
  9. Hydro-eye [Concomitant]

REACTIONS (5)
  - Peripheral swelling [None]
  - Rash erythematous [None]
  - Rash pruritic [None]
  - Joint stiffness [None]
  - Asthenia [None]

NARRATIVE: CASE EVENT DATE: 20250419
